FAERS Safety Report 15149854 (Version 3)
Quarter: 2020Q1

REPORT INFORMATION
  Report Type: Report from Study
  Country: US (occurrence: US)
  Receive Date: 20180716
  Receipt Date: 20200114
  Transmission Date: 20200409
  Serious: No
  Sender: FDA-Public Use
  Company Number: US-VANDA PHARMACEUTICALS, INC-2018TASUS002319

PATIENT
  Sex: Male

DRUGS (1)
  1. HETLIOZ [Suspect]
     Active Substance: TASIMELTEON
     Indication: NON-24-HOUR SLEEP-WAKE DISORDER
     Dosage: 20 MG, QHS
     Route: 048
     Dates: start: 2018

REACTIONS (4)
  - Drug ineffective [Unknown]
  - Incorrect product administration duration [Unknown]
  - Insomnia [Unknown]
  - Sleep disorder [Unknown]
